FAERS Safety Report 4791202-3 (Version None)
Quarter: 2005Q4

REPORT INFORMATION
  Report Type: 
  Country: None (occurrence: None)
  Receive Date: 20051005
  Receipt Date: 20050614
  Transmission Date: 20060501
  Serious: Yes (Other)
  Sender: FDA-Public Use
  Company Number: 11523

PATIENT
  Age: 47 Year
  Sex: Female

DRUGS (3)
  1. MITOXANTRONE [Suspect]
     Indication: BREAST CANCER
     Dosage: 60 MG/M2 TOTAL
  2. VINORELBINE [Suspect]
     Indication: BREAST CANCER
     Dosage: 300 MG/M2 TOTAL
  3. TAMOXIFEN [Suspect]
     Indication: BREAST CANCER

REACTIONS (1)
  - ACUTE PROMYELOCYTIC LEUKAEMIA [None]
